FAERS Safety Report 21750639 (Version 2)
Quarter: 2023Q2

REPORT INFORMATION
  Report Type: Report from Study
  Country: CA (occurrence: CA)
  Receive Date: 20221219
  Receipt Date: 20230503
  Transmission Date: 20230721
  Serious: Yes (Hospitalization, Other)
  Sender: FDA-Public Use
  Company Number: CA-JNJFOC-20221236000

PATIENT
  Age: 80 Year
  Sex: Female

DRUGS (2)
  1. REMICADE [Suspect]
     Active Substance: INFLIXIMAB
     Indication: Crohn^s disease
     Dosage: THE PATIENT RECEIVED 155 TH INJECTION OF 400 MG AND PARTIAL HARVEY-BRADSHAW COMPLETED
     Route: 042
     Dates: start: 20100810
  2. DUPIXENT [Suspect]
     Active Substance: DUPILUMAB
     Indication: Eczema
     Route: 065
     Dates: end: 202303

REACTIONS (10)
  - Rheumatoid arthritis [Unknown]
  - Blood iron decreased [Unknown]
  - Haemoglobin decreased [Unknown]
  - COVID-19 [Unknown]
  - General physical health deterioration [Unknown]
  - Eye disorder [Unknown]
  - Panic disorder [Unknown]
  - Anxiety [Unknown]
  - Eczema [Unknown]
  - Frequent bowel movements [Unknown]

NARRATIVE: CASE EVENT DATE: 20221101
